FAERS Safety Report 4746632-2 (Version None)
Quarter: 2005Q3

REPORT INFORMATION
  Report Type: 
  Country: None (occurrence: None)
  Receive Date: 20050817
  Receipt Date: 20050805
  Transmission Date: 20060218
  Serious: Yes (Other)
  Sender: FDA-Public Use
  Company Number: PHEH2005US08715

PATIENT
  Age: 6 Year
  Sex: Male

DRUGS (1)
  1. RITALIN [Suspect]

REACTIONS (2)
  - FORMICATION [None]
  - HALLUCINATION, TACTILE [None]
